FAERS Safety Report 23182987 (Version 1)
Quarter: 2023Q4

REPORT INFORMATION
  Report Type: Spontaneous
  Country: US (occurrence: US)
  Receive Date: 20231114
  Receipt Date: 20231114
  Transmission Date: 20240110
  Serious: No
  Sender: FDA-Public Use
  Company Number: US-SA-SAC20231106000239

PATIENT
  Sex: Female

DRUGS (1)
  1. DUPIXENT [Suspect]
     Active Substance: DUPILUMAB
     Indication: Dyshidrotic eczema
     Dosage: 300 MG QOW
     Route: 058
     Dates: start: 202310

REACTIONS (5)
  - Eyelid margin crusting [Unknown]
  - Ocular hyperaemia [Unknown]
  - Eye irritation [Unknown]
  - Conjunctivitis [Unknown]
  - Product use in unapproved indication [Unknown]
